FAERS Safety Report 4974367-X (Version None)
Quarter: 2006Q2

REPORT INFORMATION
  Report Type: 
  Country: None (occurrence: None)
  Receive Date: 20060410
  Receipt Date: 20060327
  Transmission Date: 20061013
  Serious: Yes (Other)
  Sender: FDA-Public Use
  Company Number: 2006042722

PATIENT
  Sex: Female
  Weight: 54.4316 kg

DRUGS (9)
  1. DETROL LA [Suspect]
     Indication: MICTURITION URGENCY
     Dates: start: 20060301
  2. DETROL [Suspect]
     Indication: MICTURITION URGENCY
     Dosage: 1 MG (1 MG, 1 IN 1 D), ORAL
     Route: 048
     Dates: end: 20060201
  3. DILANTIN [Suspect]
     Indication: PETIT MAL EPILEPSY
     Dates: start: 20050101, end: 20060201
  4. PREMARIN [Suspect]
     Indication: HOT FLUSH
     Dosage: 0.425 MG (0.425 MG, 1 IN 1 D)
  5. PHENOBARBITAL (PHENOBARBITAL) [Suspect]
     Indication: PETIT MAL EPILEPSY
     Dates: start: 20060201
  6. TOPAMAX [Suspect]
     Indication: CONVULSION
     Dosage: 75 MG (BID INTERVAL:  EVERY DAY), ORAL
     Route: 048
     Dates: start: 20060101
  7. LIPITOR [Concomitant]
  8. CRESTOR [Concomitant]
  9. MULTIVITAMIN [Concomitant]

REACTIONS (9)
  - CONVULSION [None]
  - DISEASE RECURRENCE [None]
  - DISORIENTATION [None]
  - DRUG INTERACTION [None]
  - FEELING ABNORMAL [None]
  - HOT FLUSH [None]
  - MICTURITION URGENCY [None]
  - NAUSEA [None]
  - VISION BLURRED [None]
